FAERS Safety Report 14551214 (Version 3)
Quarter: 2018Q2

REPORT INFORMATION
  Report Type: Spontaneous
  Country: JP (occurrence: JP)
  Receive Date: 20180220
  Receipt Date: 20180503
  Transmission Date: 20180711
  Serious: Yes (Other)
  Sender: FDA-Public Use
  Company Number: JP-ACCORD-063369

PATIENT
  Age: 40 Year
  Sex: Female

DRUGS (2)
  1. DOCETAXEL. [Suspect]
     Active Substance: DOCETAXEL
     Indication: LEIOMYOSARCOMA METASTATIC
     Dosage: GD THERAPY, ADMINISTERED AT 3-WEEK INTERVALS, 92.46 MG/BODY DAY 1 AND 8
     Route: 042
     Dates: start: 20141222
  2. GEMCITABINE/GEMCITABINE HYDROCHLORIDE [Suspect]
     Active Substance: GEMCITABINE\GEMCITABINE HYDROCHLORIDE
     Indication: LEIOMYOSARCOMA METASTATIC
     Dosage: GD THERAPY, ADMINISTERED AT 3-WEEK INTERVALS, DOSE WAS 1200 MG/BODY DAY 1
     Route: 042
     Dates: start: 20141222

REACTIONS (1)
  - Interstitial lung disease [Recovering/Resolving]

NARRATIVE: CASE EVENT DATE: 2015
